FAERS Safety Report 5465972-5 (Version None)
Quarter: 2007Q3

REPORT INFORMATION
  Report Type: 
  Country: None (occurrence: None)
  Receive Date: 20070924
  Receipt Date: 20070917
  Transmission Date: 20080115
  Serious: Yes (Other)
  Sender: FDA-Public Use
  Company Number: FR-ROXANE LABORATORIES, INC-2007-BP-21195RO

PATIENT
  Age: 21 Year
  Sex: Female

DRUGS (6)
  1. CYCLOPHOSPHAMIDE [Suspect]
     Indication: LUPUS NEPHRITIS
     Route: 042
     Dates: start: 20030101
  2. CYCLOPHOSPHAMIDE [Suspect]
     Route: 042
     Dates: start: 20050101
  3. PREDNISONE [Suspect]
  4. MYCOPHENOLATE MOFETIL [Suspect]
     Indication: LUPUS NEPHRITIS
  5. HYDROXYCHLOROQUINE SULFATE [Suspect]
  6. PERINDOPRIL ERBUMINE [Suspect]

REACTIONS (1)
  - ABORTION INDUCED [None]
